FAERS Safety Report 15854544 (Version 3)
Quarter: 2022Q1

REPORT INFORMATION
  Report Type: Spontaneous
  Country: US (occurrence: US)
  Receive Date: 20190122
  Receipt Date: 20220330
  Transmission Date: 20220423
  Serious: Yes (Other)
  Sender: FDA-Public Use
  Company Number: US-PFIZER INC-2019024919

PATIENT
  Age: 42 Year
  Sex: Male

DRUGS (12)
  1. DACARBAZINE [Suspect]
     Active Substance: DACARBAZINE
     Indication: Prostate cancer
     Dosage: 800 MG/M2, CYCLIC (800 MG/M^2 X 1 DOSE)
     Dates: start: 2009
  2. DACARBAZINE [Suspect]
     Active Substance: DACARBAZINE
     Indication: Metastases to lung
     Dosage: UNK (DOSE ADJUSTMENT)
  3. DACARBAZINE [Suspect]
     Active Substance: DACARBAZINE
     Indication: Metastases to the mediastinum
  4. CISPLATIN [Suspect]
     Active Substance: CISPLATIN
     Indication: Prostate cancer
     Dosage: 20 MG/M2, CYCLIC (20 MG/M2 X 4 DOSES)
     Dates: start: 2009
  5. CISPLATIN [Suspect]
     Active Substance: CISPLATIN
     Indication: Metastases to lung
     Dosage: UNK (DOSE ADJUSTMENT)
  6. VINBLASTINE [Suspect]
     Active Substance: VINBLASTINE
     Indication: Prostate cancer
     Dosage: 1.5 MG/M2, CYCLIC (1.5 MG/M2 X 4 DOSES)
     Dates: start: 2009
  7. VINBLASTINE [Suspect]
     Active Substance: VINBLASTINE
     Indication: Metastases to lung
     Dosage: UNK (DOSE ADJUSTMENT)
  8. VINBLASTINE [Suspect]
     Active Substance: VINBLASTINE
     Indication: Metastases to the mediastinum
  9. ALDESLEUKIN [Suspect]
     Active Substance: ALDESLEUKIN
     Indication: Prostate cancer
     Dosage: UNK UNK, CYCLIC (9X10^6 UNITS/M^2 X4 DOSES)
  10. ALDESLEUKIN [Suspect]
     Active Substance: ALDESLEUKIN
     Indication: Metastases to lung
     Dosage: UNK (5X10^6 UNITS/M^2 X 4 DOSES)
  11. ALDESLEUKIN [Suspect]
     Active Substance: ALDESLEUKIN
     Indication: Metastases to the mediastinum
     Dosage: UNK (DOSE ADJUSTMENT)
     Dates: start: 2009
  12. INTERFERON ALFA-2B [Concomitant]
     Active Substance: INTERFERON ALFA-2B
     Dosage: UNK

REACTIONS (2)
  - Capillary leak syndrome [Recovered/Resolved]
  - Renal impairment [Recovered/Resolved]
